FAERS Safety Report 5063390-5 (Version None)
Quarter: 2006Q3

REPORT INFORMATION
  Report Type: 
  Country: None (occurrence: None)
  Receive Date: 20060727
  Receipt Date: 20060718
  Transmission Date: 20061208
  Serious: Yes (Hospitalization)
  Sender: FDA-Public Use
  Company Number: PHRM2006FR02150

PATIENT
  Age: 55 Year
  Sex: Male

DRUGS (5)
  1. STALEVO 100 [Suspect]
     Indication: PARKINSON'S DISEASE
     Dosage: 6 TAB/DAY
     Route: 048
     Dates: start: 20060408
  2. CELANCE [Suspect]
     Indication: PARKINSON'S DISEASE
     Route: 048
     Dates: start: 19960615
  3. SINEMET [Suspect]
     Indication: PARKINSON'S DISEASE
     Dosage: 25/100 MG/DAY
     Route: 048
     Dates: start: 20030101
  4. SIFROL [Suspect]
     Indication: PARKINSON'S DISEASE
     Dosage: 0.7 MG, TID
     Route: 048
     Dates: end: 20060411
  5. CLOZAPINE [Concomitant]

REACTIONS (4)
  - ABNORMAL BEHAVIOUR [None]
  - AGGRESSION [None]
  - LIBIDO INCREASED [None]
  - PATHOLOGICAL GAMBLING [None]
